FAERS Safety Report 18921391 (Version 1)
Quarter: 2021Q1

REPORT INFORMATION
  Report Type: Spontaneous
  Country: US (occurrence: US)
  Receive Date: 20210220
  Receipt Date: 20210220
  Transmission Date: 20210420
  Serious: Yes (Hospitalization)
  Sender: FDA-Public Use
  Company Number: None

PATIENT
  Age: 68 Year
  Sex: Female
  Weight: 81 kg

DRUGS (22)
  1. AMLODIPINE [Concomitant]
     Active Substance: AMLODIPINE BESYLATE
  2. MULTIVITAMIN [Concomitant]
     Active Substance: VITAMINS
  3. GABAPENTIN 300MG [Concomitant]
     Active Substance: GABAPENTIN
  4. LISINOPRIL. [Concomitant]
     Active Substance: LISINOPRIL
  5. MONTELUKAST [Concomitant]
     Active Substance: MONTELUKAST SODIUM
  6. ONDANSETRON 8MG, PROCHLORPERAZINE 10MG [Concomitant]
  7. POTASSIUM 20MEQ, CITALOPRAM 20MG [Concomitant]
  8. HAIR SKIN NAILS [Concomitant]
  9. ALBUTEROL 108MCG [Concomitant]
     Active Substance: ALBUTEROL
  10. DIPHENHYDRAMINE 25MG [Concomitant]
     Active Substance: DIPHENHYDRAMINE
  11. FERROUS SULFATE 325MG [Concomitant]
     Active Substance: FERROUS SULFATE
  12. SERTRALINE 50MG, TYLENOL 325MG [Concomitant]
  13. BUPROPION 150MG [Concomitant]
     Active Substance: BUPROPION HYDROCHLORIDE
  14. BUSPIRONE 10MG [Concomitant]
  15. LEVOTHYROXINE. [Concomitant]
     Active Substance: LEVOTHYROXINE
  16. PHILIPS COLON HEALTH, FAMOTIDINE 20MG [Concomitant]
  17. CAPECITABINE. [Suspect]
     Active Substance: CAPECITABINE
     Indication: COLON CANCER
     Dosage: ?          OTHER FREQUENCY:BID X14DAYS, 7 OFF;?
     Route: 048
     Dates: start: 20201223, end: 20210205
  18. DEXAMETHASONE. [Concomitant]
     Active Substance: DEXAMETHASONE
  19. MELATONIN 10MG [Concomitant]
  20. ZOLPIDEM [Concomitant]
     Active Substance: ZOLPIDEM TARTRATE
  21. LIDOCAINE?PRILOCAINE 2.5?2.5% [Concomitant]
  22. NAPROXEN 500MG [Concomitant]
     Active Substance: NAPROXEN

REACTIONS (2)
  - Vomiting [None]
  - Palmar-plantar erythrodysaesthesia syndrome [None]

NARRATIVE: CASE EVENT DATE: 20210205
